FAERS Safety Report 13455333 (Version 1)
Quarter: 2017Q2

REPORT INFORMATION
  Report Type: Spontaneous
  Country: US (occurrence: US)
  Receive Date: 20170419
  Receipt Date: 20170419
  Transmission Date: 20170830
  Serious: No
  Sender: FDA-Public Use
  Company Number: US-PFIZER INC-2017164615

PATIENT
  Sex: Female

DRUGS (2)
  1. LETROZOL [Suspect]
     Active Substance: LETROZOLE
     Dosage: UNK
  2. IBRANCE [Suspect]
     Active Substance: PALBOCICLIB
     Indication: BREAST CANCER METASTATIC
     Dosage: 125 MG, UNK

REACTIONS (13)
  - Dizziness [Unknown]
  - Dyspnoea [Unknown]
  - Dry mouth [Unknown]
  - White blood cell count decreased [Unknown]
  - Abdominal discomfort [Unknown]
  - Neoplasm recurrence [Unknown]
  - Gait disturbance [Unknown]
  - Decreased appetite [Unknown]
  - Pallor [Unknown]
  - Weight decreased [Unknown]
  - Asthenia [Unknown]
  - Platelet count decreased [Unknown]
  - Loss of personal independence in daily activities [Unknown]
